FAERS Safety Report 20866702 (Version 1)
Quarter: 2022Q2

REPORT INFORMATION
  Report Type: Spontaneous
  Country: US (occurrence: None)
  Receive Date: 20220523
  Receipt Date: 20220523
  Transmission Date: 20220721
  Serious: Yes (Hospitalization)
  Sender: FDA-Public Use
  Company Number: None

PATIENT
  Age: 74 Year
  Sex: Male

DRUGS (1)
  1. TASIGNA [Suspect]
     Active Substance: NILOTINIB
     Indication: Myeloid leukaemia
     Dosage: FREQUENCY : DAILY;?
     Route: 048
     Dates: start: 20160521

REACTIONS (1)
  - Thrombosis [None]

NARRATIVE: CASE EVENT DATE: 20220517
